FAERS Safety Report 6399532-9 (Version None)
Quarter: 2009Q4

REPORT INFORMATION
  Report Type: 
  Country: None (occurrence: None)
  Receive Date: 20091013
  Receipt Date: 20091013
  Transmission Date: 20100525
  Serious: No
  Sender: FDA-Public Use
  Company Number: None

PATIENT
  Age: 19 Year
  Sex: Male
  Weight: 72.1219 kg

DRUGS (1)
  1. GEODON [Suspect]
     Indication: MAJOR DEPRESSION
     Dosage: BID PO
     Route: 048
     Dates: start: 20090801

REACTIONS (2)
  - EXTRAPYRAMIDAL DISORDER [None]
  - SALIVARY HYPERSECRETION [None]
